FAERS Safety Report 12198067 (Version 1)
Quarter: 2016Q1

REPORT INFORMATION
  Report Type: Spontaneous
  Country: US (occurrence: None)
  Receive Date: 20160321
  Receipt Date: 20160321
  Transmission Date: 20160526
  Serious: No
  Sender: FDA-Public Use
  Company Number: None

PATIENT
  Age: 59 Year
  Sex: Male
  Weight: 103.42 kg

DRUGS (4)
  1. SIMVISTATIN [Concomitant]
     Active Substance: SIMVASTATIN
  2. BISOPROLOL [Concomitant]
     Active Substance: BISOPROLOL
  3. ALBUTEROL. [Concomitant]
     Active Substance: ALBUTEROL
  4. BISOPROLOL [Suspect]
     Active Substance: BISOPROLOL
     Indication: HYPERTENSION
     Dosage: 1 PILL ONCE DAILY
     Route: 048

REACTIONS (4)
  - Somnolence [None]
  - Abnormal dreams [None]
  - Heart rate decreased [None]
  - Hypersomnia [None]

NARRATIVE: CASE EVENT DATE: 20160319
